FAERS Safety Report 9687015 (Version 1)
Quarter: 2013Q4

REPORT INFORMATION
  Report Type: Spontaneous
  Country: FR (occurrence: FR)
  Receive Date: 20131113
  Receipt Date: 20131113
  Transmission Date: 20140711
  Serious: Yes (Hospitalization)
  Sender: FDA-Public Use
  Company Number: FR-PFIZER INC-2013320059

PATIENT
  Age: 40 Year
  Sex: Female

DRUGS (4)
  1. RHINADVIL [Suspect]
     Indication: SINUSITIS
     Dosage: UNK
     Dates: start: 20111230, end: 20120101
  2. PYOSTACINE [Suspect]
     Dosage: UNK
     Dates: start: 20111231, end: 20120101
  3. TOPLEXIL [Suspect]
     Indication: SINUSITIS
     Dosage: 0.33 MG/ML
     Dates: start: 20111230, end: 20120101
  4. TAVANIC [Suspect]
     Dosage: UNK
     Dates: start: 20120104, end: 20120111

REACTIONS (1)
  - Toxic skin eruption [Recovered/Resolved]
